FAERS Safety Report 8807202 (Version 1)
Quarter: 2012Q4

REPORT INFORMATION
  Report Type: Report from Study
  Country: DE (occurrence: DE)
  Receive Date: 20120925
  Receipt Date: 20120925
  Transmission Date: 20130627
  Serious: Yes (Death, Hospitalization)
  Sender: FDA-Public Use
  Company Number: DE-BAXTER-2012BAX017388

PATIENT
  Age: 72 Year
  Sex: Female
  Weight: 80 kg

DRUGS (17)
  1. CYCLOPHOSPHAMID [Suspect]
     Indication: CHRONIC LYMPHOCYTIC LEUKAEMIA
     Route: 042
     Dates: start: 20100216, end: 20100709
  2. RITUXIMAB [Suspect]
     Indication: CHRONIC LYMPHOID LEUKAEMIA
     Route: 042
     Dates: start: 20100215, end: 20100707
  3. FLUDARABINE [Suspect]
     Indication: CHRONIC LYMPHOCYTIC LEUKAEMIA
     Route: 042
     Dates: start: 20100216, end: 20100709
  4. NEUPOGEN [Concomitant]
     Indication: DRUG USE FOR UNKNOWN INDICATION
     Route: 065
     Dates: start: 20100823, end: 20100827
  5. NEUPOGEN [Concomitant]
     Dates: start: 20100820, end: 20100820
  6. AVELOX [Concomitant]
     Indication: DRUG USE FOR UNKNOWN INDICATION
     Route: 065
     Dates: start: 20100820, end: 20100823
  7. NOVALGIN                           /00169801/ [Concomitant]
     Indication: DRUG USE FOR UNKNOWN INDICATION
     Route: 065
     Dates: start: 20100820, end: 20100823
  8. STRUCTOKABIVEN                     /05981101/ [Concomitant]
     Indication: DRUG USE FOR UNKNOWN INDICATION
     Route: 042
     Dates: start: 20100823, end: 20100826
  9. PERFALGAN [Concomitant]
     Indication: DRUG USE FOR UNKNOWN INDICATION
     Route: 065
     Dates: start: 20100823, end: 20100824
  10. POTASSIUM CHLORIDE [Concomitant]
     Indication: DRUG USE FOR UNKNOWN INDICATION
     Dosage: 60 MVAL
     Route: 065
     Dates: start: 20100824, end: 20100824
  11. POTASSIUM CHLORIDE [Concomitant]
     Dosage: 120 MVAL
     Route: 065
     Dates: start: 20100825, end: 20100826
  12. GAMUNEX [Concomitant]
     Indication: DRUG USE FOR UNKNOWN INDICATION
     Route: 065
     Dates: start: 20100824, end: 20100824
  13. TAZOBAC [Concomitant]
     Indication: DRUG USE FOR UNKNOWN INDICATION
     Route: 042
     Dates: start: 20100823, end: 20100827
  14. CIPROFLOXACIN [Concomitant]
     Indication: DRUG USE FOR UNKNOWN INDICATION
     Route: 042
     Dates: start: 20100824, end: 20100827
  15. AMBISOME [Concomitant]
     Indication: DRUG USE FOR UNKNOWN INDICATION
     Route: 042
     Dates: start: 20100824, end: 20100827
  16. GELAFUNDIN                         /00648401/ [Concomitant]
     Indication: DRUG USE FOR UNKNOWN INDICATION
     Route: 065
     Dates: start: 20100824, end: 20100827
  17. HUMANALBUMIN [Concomitant]
     Indication: DRUG USE FOR UNKNOWN INDICATION
     Dosage: 20 % 4X daily
     Route: 065
     Dates: start: 20100825, end: 20100827

REACTIONS (2)
  - Sepsis [Fatal]
  - Gastroenteritis norovirus [Not Recovered/Not Resolved]
